FAERS Safety Report 6763098-1 (Version None)
Quarter: 2010Q2

REPORT INFORMATION
  Report Type: 
  Country: None (occurrence: None)
  Receive Date: 20100609
  Receipt Date: 20100528
  Transmission Date: 20101027
  Serious: Yes (Other)
  Sender: FDA-Public Use
  Company Number: JP-ABBOTT-07P-087-0425786-00

PATIENT
  Age: 66 Year
  Sex: Male

DRUGS (6)
  1. LEUPROLIDE ACETATE [Suspect]
     Indication: PROSTATE CANCER STAGE II
     Route: 058
     Dates: start: 20070111
  2. LEUPROLIDE ACETATE [Suspect]
     Dates: start: 20061201, end: 20061201
  3. TAMSULOSIN HYDROCHLORIDE [Concomitant]
     Indication: BENIGN PROSTATIC HYPERPLASIA
     Route: 048
  4. CYANOCOBALAMIN [Concomitant]
     Indication: DIABETES MELLITUS
     Route: 048
  5. NOVORAPID [Concomitant]
     Indication: DIABETES MELLITUS
     Route: 058
  6. NOVOLIN N [Concomitant]
     Indication: DIABETES MELLITUS
     Route: 058

REACTIONS (3)
  - CARDIAC FAILURE [None]
  - MYOCARDIAL INFARCTION [None]
  - PNEUMONIA [None]
